FAERS Safety Report 14508771 (Version 1)
Quarter: 2018Q1

REPORT INFORMATION
  Report Type: Spontaneous
  Country: US (occurrence: US)
  Receive Date: 20180209
  Receipt Date: 20180209
  Transmission Date: 20180509
  Serious: No
  Sender: FDA-Public Use
  Company Number: US-ACCORD-062922

PATIENT
  Age: 48 Year
  Sex: Female
  Weight: 79.83 kg

DRUGS (1)
  1. QUETIAPINE ACCORD [Suspect]
     Active Substance: QUETIAPINE
     Indication: BIPOLAR DISORDER
     Dosage: STRENGTH: 200 MG??QD
     Route: 048
     Dates: start: 20180101

REACTIONS (1)
  - Drug ineffective [Unknown]
